FAERS Safety Report 24167163 (Version 2)
Quarter: 2024Q3

REPORT INFORMATION
  Report Type: Spontaneous
  Country: US (occurrence: US)
  Receive Date: 20240802
  Receipt Date: 20240918
  Transmission Date: 20241017
  Serious: Yes (Other)
  Sender: VIFOR
  Company Number: US-Vifor (International) Inc.-VIT-2024-06479

PATIENT
  Age: 71 Year
  Sex: Male
  Weight: 55 kg

DRUGS (4)
  1. MIRCERA [Suspect]
     Active Substance: METHOXY POLYETHYLENE GLYCOL-EPOETIN BETA
     Indication: Nephrogenic anaemia
     Dosage: ADMINISTRATION PRIOR TO ADVERSE EVENTS: 21-MAY-2024 (THIRD DOSE)?DOSE NUMBER: 4 AND DOSE CATEGORY: 4
     Route: 040
     Dates: start: 20240423, end: 20240604
  2. VENOFER [Suspect]
     Active Substance: IRON SUCROSE
     Indication: Iron deficiency
     Route: 040
     Dates: start: 20240423
  3. HEPARIN [Concomitant]
     Active Substance: HEPARIN SODIUM
     Indication: Anticoagulant therapy
     Dosage: DAILY DOSE: 4000 (UNIT UNKNOWN)
     Route: 040
     Dates: start: 20240423
  4. CALCITRIOL [Concomitant]
     Active Substance: CALCITRIOL
     Indication: Hypocalcaemia
     Route: 048
     Dates: start: 20240523

REACTIONS (2)
  - Drug hypersensitivity [Recovered/Resolved]
  - Hypotension [Recovered/Resolved]

NARRATIVE: CASE EVENT DATE: 20240604
